FAERS Safety Report 26212923 (Version 1)
Quarter: 2025Q4

REPORT INFORMATION
  Report Type: Spontaneous
  Country: GB (occurrence: GB)
  Receive Date: 20251230
  Receipt Date: 20251230
  Transmission Date: 20260117
  Serious: Yes (Life-Threatening)
  Sender: MYLAN
  Company Number: None

PATIENT
  Age: 59 Year
  Sex: Male
  Weight: 66 kg

DRUGS (16)
  1. GABAPENTIN [Suspect]
     Active Substance: GABAPENTIN
     Indication: Neuralgia
     Dosage: 300 MILLIGRAM, TID (300 MG THREE TIMES A DAY)
     Route: 065
     Dates: start: 20240614
  2. GABAPENTIN [Suspect]
     Active Substance: GABAPENTIN
     Dosage: 300 MILLIGRAM, TID (300 MG THREE TIMES A DAY)
     Dates: start: 20240614
  3. GABAPENTIN [Suspect]
     Active Substance: GABAPENTIN
     Dosage: 300 MILLIGRAM, TID (300 MG THREE TIMES A DAY)
     Dates: start: 20240614
  4. GABAPENTIN [Suspect]
     Active Substance: GABAPENTIN
     Dosage: 300 MILLIGRAM, TID (300 MG THREE TIMES A DAY)
     Route: 065
     Dates: start: 20240614
  5. GABAPENTIN [Suspect]
     Active Substance: GABAPENTIN
     Dosage: 300 MILLIGRAM, TID
     Dates: start: 20240714
  6. GABAPENTIN [Suspect]
     Active Substance: GABAPENTIN
     Dosage: 300 MILLIGRAM, TID
     Dates: start: 20240714
  7. GABAPENTIN [Suspect]
     Active Substance: GABAPENTIN
     Dosage: 300 MILLIGRAM, TID
     Route: 065
     Dates: start: 20240714
  8. GABAPENTIN [Suspect]
     Active Substance: GABAPENTIN
     Dosage: 300 MILLIGRAM, TID
     Route: 065
     Dates: start: 20240714
  9. GABAPENTIN [Suspect]
     Active Substance: GABAPENTIN
     Dosage: UNK (REDUCED DOSE)
     Route: 065
  10. GABAPENTIN [Suspect]
     Active Substance: GABAPENTIN
     Dosage: UNK (REDUCED DOSE)
  11. GABAPENTIN [Suspect]
     Active Substance: GABAPENTIN
     Dosage: UNK (REDUCED DOSE)
  12. GABAPENTIN [Suspect]
     Active Substance: GABAPENTIN
     Dosage: UNK (REDUCED DOSE)
     Route: 065
  13. CLOZAPINE [Concomitant]
     Active Substance: CLOZAPINE
     Indication: Schizophrenia
     Dosage: UNK
  14. CLOZAPINE [Concomitant]
     Active Substance: CLOZAPINE
     Dosage: UNK
     Route: 065
  15. CLOZAPINE [Concomitant]
     Active Substance: CLOZAPINE
     Dosage: UNK
     Route: 065
  16. CLOZAPINE [Concomitant]
     Active Substance: CLOZAPINE
     Dosage: UNK

REACTIONS (1)
  - Vertigo [Not Recovered/Not Resolved]

NARRATIVE: CASE EVENT DATE: 20240814
